FAERS Safety Report 7424350-X (Version None)
Quarter: 2011Q2

REPORT INFORMATION
  Report Type: 
  Country: None (occurrence: None)
  Receive Date: 20110411
  Receipt Date: 20110331
  Transmission Date: 20111010
  Serious: Yes (Hospitalization)
  Sender: FDA-Public Use
  Company Number: UTC-005725

PATIENT
  Age: 56 Year
  Sex: Female
  Weight: 45.5 kg

DRUGS (1)
  1. TYVASO [Suspect]
     Indication: PULMONARY ARTERIAL HYPERTENSION
     Dosage: 216 MCG (54 MCG,4 IN 1 D),INHALATION
     Route: 055
     Dates: start: 20100816

REACTIONS (4)
  - COLLAPSE OF LUNG [None]
  - PNEUMOTHORAX [None]
  - PULMONARY OEDEMA [None]
  - LYMPHADENOPATHY MEDIASTINAL [None]
